FAERS Safety Report 14653991 (Version 2)
Quarter: 2019Q2

REPORT INFORMATION
  Report Type: Spontaneous
  Country: DE (occurrence: DE)
  Receive Date: 20180319
  Receipt Date: 20190518
  Transmission Date: 20190711
  Serious: Yes (Other)
  Sender: FDA-Public Use
  Company Number: DE-UCBSA-2018010714

PATIENT
  Age: 36 Year
  Sex: Female
  Weight: 60 kg

DRUGS (2)
  1. VIMPAT [Suspect]
     Active Substance: LACOSAMIDE
     Indication: PRODUCT USED FOR UNKNOWN INDICATION
     Dosage: 200 MILLIGRAM, 2X/DAY (BID)
     Route: 048
     Dates: start: 20130708
  2. LEVETIRACETAM UCB [Suspect]
     Active Substance: LEVETIRACETAM
     Indication: EPILEPSY
     Dosage: 1000 MILLIGRAM, 2X/DAY (BID)
     Route: 048
     Dates: start: 20110124

REACTIONS (4)
  - Maternal exposure before pregnancy [Unknown]
  - Generalised tonic-clonic seizure [Unknown]
  - Premature rupture of membranes [Unknown]
  - Twin pregnancy [Unknown]

NARRATIVE: CASE EVENT DATE: 201801
